FAERS Safety Report 4361427-X (Version None)
Quarter: 2004Q2

REPORT INFORMATION
  Report Type: 
  Country: None (occurrence: None)
  Receive Date: 20040517
  Receipt Date: 20040430
  Transmission Date: 20050107
  Serious: Yes (Hospitalization)
  Sender: FDA-Public Use
  Company Number: S04-USA-00834-01

PATIENT
  Age: 69 Year
  Sex: Female

DRUGS (6)
  1. LEXAPRO [Suspect]
     Dosage: 10 MG QD PO
     Route: 048
     Dates: start: 20040201, end: 20040201
  2. CELEBREX [Concomitant]
  3. LORAZEPAM [Concomitant]
  4. XANAX [Concomitant]
  5. ACHIPHEX (RABEPRAZOLE) [Concomitant]
  6. TYLENOL [Concomitant]

REACTIONS (19)
  - AGITATION [None]
  - AORTIC DILATATION [None]
  - ASPIRATION [None]
  - ATELECTASIS [None]
  - CATATONIA [None]
  - CYST [None]
  - HAEMATURIA [None]
  - HYPONATRAEMIA [None]
  - INAPPROPRIATE ANTIDIURETIC HORMONE SECRETION [None]
  - LIVER FUNCTION TEST ABNORMAL [None]
  - LOBAR PNEUMONIA [None]
  - MYALGIA [None]
  - MYELITIS [None]
  - NUCLEAR MAGNETIC RESONANCE IMAGING BRAIN ABNORMAL [None]
  - PLEURAL EFFUSION [None]
  - RESPIRATORY DISORDER [None]
  - RHABDOMYOLYSIS [None]
  - STATUS EPILEPTICUS [None]
  - WEIGHT DECREASED [None]
